FAERS Safety Report 17874019 (Version 2)
Quarter: 2020Q3

REPORT INFORMATION
  Report Type: Spontaneous
  Country: JP (occurrence: JP)
  Receive Date: 20200609
  Receipt Date: 20200701
  Transmission Date: 20201103
  Serious: Yes (Hospitalization, Disabling, Other)
  Sender: FDA-Public Use
  Company Number: JP-GLAXOSMITHKLINE-JP2020093772

PATIENT
  Age: 14 Year
  Sex: Female
  Weight: 48 kg

DRUGS (4)
  1. CALONAL [Concomitant]
     Active Substance: ACETAMINOPHEN
     Indication: HERPES ZOSTER
     Dosage: UNK UNK, BID
     Dates: start: 20200523
  2. ARASENA?A OINTMENT [Concomitant]
     Indication: HERPES ZOSTER
     Dosage: UNK
     Route: 061
     Dates: start: 20200523
  3. VALTREX [Suspect]
     Active Substance: VALACYCLOVIR HYDROCHLORIDE
     Indication: HERPES ZOSTER
     Route: 048
     Dates: start: 20200523, end: 20200529
  4. CEFTRIAXONE SODIUM. [Suspect]
     Active Substance: CEFTRIAXONE SODIUM
     Dosage: UNK
     Dates: start: 2020

REACTIONS (15)
  - Back pain [Unknown]
  - Renal impairment [Unknown]
  - Vomiting [Unknown]
  - Gastroenteritis [Unknown]
  - Hypertension [Unknown]
  - Oliguria [Unknown]
  - Malaise [Unknown]
  - Cholelithiasis [Unknown]
  - Postrenal failure [Recovered/Resolved with Sequelae]
  - Generalised oedema [Unknown]
  - Acute kidney injury [Recovered/Resolved with Sequelae]
  - Nephropathy toxic [Recovered/Resolved with Sequelae]
  - Physical deconditioning [Unknown]
  - Headache [Unknown]
  - Neck pain [Unknown]

NARRATIVE: CASE EVENT DATE: 20200526
